FAERS Safety Report 5305947-X (Version None)
Quarter: 2007Q2

REPORT INFORMATION
  Report Type: 
  Country: None (occurrence: None)
  Receive Date: 20070424
  Receipt Date: 20070416
  Transmission Date: 20071010
  Serious: Yes (Other)
  Sender: FDA-Public Use
  Company Number: US-JNJFOC-20070403639

PATIENT
  Sex: Female
  Weight: 93.44 kg

DRUGS (10)
  1. DURAGESIC-100 [Suspect]
     Indication: BACK PAIN
     Route: 062
  2. LOTREL [Concomitant]
     Indication: BLOOD PRESSURE
     Route: 048
  3. METOPROLOL SUCCINATE [Concomitant]
     Indication: BLOOD PRESSURE
     Route: 048
  4. TESTOSTERONE [Concomitant]
     Indication: HORMONE REPLACEMENT THERAPY
     Route: 061
  5. DOXEPIN HCL [Concomitant]
     Indication: SLEEP DISORDER
     Route: 048
  6. LASIX [Concomitant]
     Indication: FLUID RETENTION
     Route: 048
  7. TIZANIDINE HCL [Concomitant]
     Indication: MUSCLE RELAXANT THERAPY
     Route: 048
  8. ZAROXOLYN [Concomitant]
     Indication: FLUID RETENTION
     Route: 048
  9. KLONOPIN [Concomitant]
     Indication: MUSCLE RELAXANT THERAPY
     Route: 048
  10. ENDOCET [Concomitant]
     Indication: BREAKTHROUGH PAIN
     Route: 048

REACTIONS (3)
  - APPLICATION SITE ERYTHEMA [None]
  - FLUID RETENTION [None]
  - THYROID DISORDER [None]
